FAERS Safety Report 16877342 (Version 2)
Quarter: 2021Q1

REPORT INFORMATION
  Report Type: Spontaneous
  Country: US (occurrence: US)
  Receive Date: 20191002
  Receipt Date: 20210219
  Transmission Date: 20210419
  Serious: No
  Sender: FDA-Public Use
  Company Number: US-PFIZER INC-2019419705

PATIENT
  Age: 74 Year
  Sex: Female
  Weight: 58.96 kg

DRUGS (4)
  1. XANAX [Suspect]
     Active Substance: ALPRAZOLAM
     Dosage: 0.25 MG, 2X/DAY (ONE TABLET BY MOUTH TWICE PER DAY)
     Route: 048
  2. BENICAR [Concomitant]
     Active Substance: OLMESARTAN MEDOXOMIL
     Indication: BLOOD PRESSURE ABNORMAL
     Dosage: UNK
  3. ATENOLOL. [Concomitant]
     Active Substance: ATENOLOL
     Indication: BLOOD PRESSURE ABNORMAL
     Dosage: 12.5 MG (HALF OF 25 MG), UNK
  4. XANAX [Suspect]
     Active Substance: ALPRAZOLAM
     Indication: ANXIETY
     Dosage: 0.5 MG (2 PILLS), DAILY
     Dates: start: 2017

REACTIONS (9)
  - Product odour abnormal [Unknown]
  - Intentional product use issue [Unknown]
  - Therapeutic response unexpected [Unknown]
  - Abdominal pain upper [Unknown]
  - Headache [Unknown]
  - Feeling abnormal [Unknown]
  - Expired product administered [Unknown]
  - Cold sweat [Unknown]
  - Back pain [Unknown]

NARRATIVE: CASE EVENT DATE: 201906
